FAERS Safety Report 4371121-7 (Version None)
Quarter: 2004Q2

REPORT INFORMATION
  Report Type: 
  Country: None (occurrence: None)
  Receive Date: 20040601
  Receipt Date: 20040524
  Transmission Date: 20050107
  Serious: Yes (Life-Threatening)
  Sender: FDA-Public Use
  Company Number: 2004-05-1807

PATIENT
  Age: 74 Year
  Sex: Female

DRUGS (4)
  1. INTRON A [Suspect]
     Indication: MALIGNANT MELANOMA
     Dosage: 30-15 MIU SUBCUTANEOUS
     Route: 058
     Dates: start: 20031222
  2. ATORVASTATIN CALCIUM TABLETS [Concomitant]
  3. STILNOX TABLETS [Concomitant]
  4. CALCIUM CARBONATE/CHOLECALCIFEROL GRANULES [Concomitant]

REACTIONS (3)
  - CYTOLYTIC HEPATITIS [None]
  - LYMPHOPENIA [None]
  - NEUTROPENIA [None]
